FAERS Safety Report 10399635 (Version 1)
Quarter: 2014Q3

REPORT INFORMATION
  Report Type: Spontaneous
  Country: BR (occurrence: BR)
  Receive Date: 20140821
  Receipt Date: 20140821
  Transmission Date: 20150326
  Serious: Yes (Hospitalization)
  Sender: FDA-Public Use
  Company Number: BR-GLAXOSMITHKLINE-A1085956A

PATIENT
  Age: 40 Year
  Sex: Female
  Weight: 65 kg

DRUGS (2)
  1. NIQUITIN [Suspect]
     Active Substance: NICOTINE
     Indication: SMOKING CESSATION THERAPY
     Dates: start: 2008
  2. DEPAKENE [Concomitant]
     Active Substance: VALPROIC ACID
     Indication: DEPRESSION

REACTIONS (5)
  - Drug ineffective [Unknown]
  - Cardiac disorder [Unknown]
  - Incorrect drug administration duration [Unknown]
  - Incorrect route of drug administration [Unknown]
  - Vomiting [Unknown]
